FAERS Safety Report 4572048-8 (Version None)
Quarter: 2005Q1

REPORT INFORMATION
  Report Type: 
  Country: None (occurrence: None)
  Receive Date: 20050202
  Receipt Date: 20050120
  Transmission Date: 20050727
  Serious: Yes (Other)
  Sender: FDA-Public Use
  Company Number: 2005016638

PATIENT
  Age: 43 Year
  Sex: Male

DRUGS (4)
  1. ZOLOFT [Suspect]
     Indication: DEPRESSION
     Dosage: 75 MG (1 IN 1 D), ORAL
     Route: 048
     Dates: start: 20040217
  2. ZOLOFT [Suspect]
     Indication: PANIC DISORDER
     Dosage: 75 MG (1 IN 1 D), ORAL
     Route: 048
     Dates: start: 20040217
  3. MIRTAZAPINE [Concomitant]
  4. CLONAZEPAM [Concomitant]

REACTIONS (1)
  - B-CELL LYMPHOMA [None]
